FAERS Safety Report 6961355-7 (Version None)
Quarter: 2010Q3

REPORT INFORMATION
  Report Type: 
  Country: None (occurrence: None)
  Receive Date: 20100901
  Receipt Date: 20100825
  Transmission Date: 20110219
  Serious: Yes (Death, Life-Threatening)
  Sender: FDA-Public Use
  Company Number: B0667929A

PATIENT
  Sex: Female
  Weight: 51 kg

DRUGS (9)
  1. TYKERB [Suspect]
     Indication: BREAST CANCER
     Dosage: 1250MG PER DAY
     Route: 048
     Dates: start: 20091130, end: 20100103
  2. XELODA [Suspect]
     Indication: BREAST CANCER
     Dosage: 2400MG PER DAY
     Route: 048
     Dates: start: 20091130, end: 20091213
  3. MUCOSTA [Concomitant]
     Indication: GASTRITIS
     Route: 048
     Dates: start: 20091130, end: 20100118
  4. LOXONIN [Concomitant]
     Indication: CANCER PAIN
     Route: 065
     Dates: start: 20091130, end: 20100118
  5. GASTER [Concomitant]
     Indication: GASTRITIS
     Route: 042
     Dates: start: 20091130, end: 20100118
  6. METHYCOBAL [Concomitant]
     Indication: NEUROPATHY PERIPHERAL
     Dates: start: 20091130, end: 20100118
  7. GASMOTIN [Concomitant]
     Indication: ABDOMINAL DISCOMFORT
     Route: 048
     Dates: start: 20091130, end: 20100118
  8. MAGNESIUM OXIDE [Concomitant]
     Indication: CONSTIPATION
     Route: 048
     Dates: start: 20091130, end: 20100118
  9. UNKNOWN DRUG [Concomitant]
     Indication: COUGH
     Route: 048
     Dates: start: 20090104, end: 20100118

REACTIONS (4)
  - ATELECTASIS [None]
  - DIARRHOEA [None]
  - NASOPHARYNGITIS [None]
  - PNEUMONIA [None]
